FAERS Safety Report 14489288 (Version 1)
Quarter: 2018Q1

REPORT INFORMATION
  Report Type: Spontaneous
  Country: US (occurrence: US)
  Receive Date: 20180205
  Receipt Date: 20180205
  Transmission Date: 20180509
  Serious: No
  Sender: FDA-Public Use
  Company Number: US-SUNOVION-2018SUN000302

PATIENT
  Sex: Female

DRUGS (1)
  1. LATUDA [Suspect]
     Active Substance: LURASIDONE HYDROCHLORIDE
     Indication: BIPOLAR II DISORDER
     Dosage: 40 MG, UNK
     Route: 048

REACTIONS (4)
  - Off label use [Unknown]
  - Anxiety [Not Recovered/Not Resolved]
  - Crying [Not Recovered/Not Resolved]
  - Nervousness [Not Recovered/Not Resolved]
